FAERS Safety Report 7467838-8 (Version None)
Quarter: 2011Q2

REPORT INFORMATION
  Report Type: 
  Country: None (occurrence: None)
  Receive Date: 20110509
  Receipt Date: 20110110
  Transmission Date: 20111010
  Serious: No
  Sender: FDA-Public Use
  Company Number: US-ALEXION-A201100044

PATIENT
  Sex: Female

DRUGS (5)
  1. POTASSIUM CHLORIDE [Concomitant]
     Dosage: UNK
  2. WARFARIN [Concomitant]
  3. NEURONTIN [Concomitant]
     Dosage: 300 MG, BID
  4. SOLIRIS [Suspect]
     Indication: PAROXYSMAL NOCTURNAL HAEMOGLOBINURIA
     Dosage: 600 MG, QW
     Route: 042
     Dates: start: 20110105
  5. SOLIRIS [Suspect]
     Dosage: 900 MG, Q2W
     Route: 042
     Dates: start: 20110101

REACTIONS (13)
  - RED CELL DISTRIBUTION WIDTH INCREASED [None]
  - RED BLOOD CELL COUNT DECREASED [None]
  - BLOOD UREA NITROGEN/CREATININE RATIO DECREASED [None]
  - BLOOD POTASSIUM DECREASED [None]
  - HAEMOGLOBIN DECREASED [None]
  - HEADACHE [None]
  - MEAN CELL VOLUME INCREASED [None]
  - MEAN CELL HAEMOGLOBIN CONCENTRATION DECREASED [None]
  - BLOOD CREATININE INCREASED [None]
  - HAEMATOCRIT DECREASED [None]
  - WHITE BLOOD CELL COUNT DECREASED [None]
  - GLOMERULAR FILTRATION RATE DECREASED [None]
  - BLOOD BILIRUBIN INCREASED [None]
